FAERS Safety Report 4854811-9 (Version None)
Quarter: 2005Q4

REPORT INFORMATION
  Report Type: 
  Country: None (occurrence: None)
  Receive Date: 20051213
  Receipt Date: 20051201
  Transmission Date: 20060501
  Serious: Yes (Hospitalization)
  Sender: FDA-Public Use
  Company Number: 2005161377

PATIENT
  Age: 17 Year
  Sex: Male

DRUGS (1)
  1. NORVASC [Suspect]
     Dosage: 100 MG (5 MG STAT) ORAL
     Route: 048
     Dates: start: 20051119, end: 20051119

REACTIONS (7)
  - CARDIAC ARREST [None]
  - DIALYSIS [None]
  - HYPOTENSION [None]
  - INTENTIONAL OVERDOSE [None]
  - SUICIDE ATTEMPT [None]
  - SYNCOPE [None]
  - THERAPY NON-RESPONDER [None]
